FAERS Safety Report 25022655 (Version 1)
Quarter: 2025Q1

REPORT INFORMATION
  Report Type: Spontaneous
  Country: US (occurrence: US)
  Receive Date: 20250228
  Receipt Date: 20250228
  Transmission Date: 20250409
  Serious: No
  Sender: BAUSCH AND LOMB
  Company Number: US-BAUSCHBL-2025BNL003071

PATIENT
  Sex: Female

DRUGS (2)
  1. ALREX [Suspect]
     Active Substance: LOTEPREDNOL ETABONATE
     Indication: Routine health maintenance
     Route: 047
  2. RESTASIS [Concomitant]
     Active Substance: CYCLOSPORINE
     Indication: Product used for unknown indication

REACTIONS (4)
  - Eye colour change [Unknown]
  - Ocular hyperaemia [Unknown]
  - Eye irritation [Unknown]
  - Inappropriate schedule of product administration [Unknown]
